FAERS Safety Report 21056845 (Version 1)
Quarter: 2022Q3

REPORT INFORMATION
  Report Type: Spontaneous
  Country: JP (occurrence: JP)
  Receive Date: 20220708
  Receipt Date: 20220708
  Transmission Date: 20221026
  Serious: Yes (Hospitalization)
  Sender: FDA-Public Use
  Company Number: JP-ASTELLAS-2022JP008181

PATIENT
  Age: 5 Decade
  Sex: Female

DRUGS (23)
  1. TACROLIMUS [Interacting]
     Active Substance: TACROLIMUS
     Indication: Prophylaxis against graft versus host disease
     Dosage: 4.5 MG, ONCE DAILY, BEFORE BREAKFAST
     Route: 048
     Dates: start: 20201026
  2. TACROLIMUS [Interacting]
     Active Substance: TACROLIMUS
     Dosage: 2 MG, ONCE DAILY, BEFORE BREAKFAST
     Route: 048
     Dates: start: 20210918
  3. TACROLIMUS [Interacting]
     Active Substance: TACROLIMUS
     Dosage: 4.5 MG, ONCE DAILY, BEFORE BREAKFAST
     Route: 048
     Dates: start: 20210920, end: 20210923
  4. TACROLIMUS [Interacting]
     Active Substance: TACROLIMUS
     Dosage: 3 MG, ONCE DAILY, BEFORE BREAKFAST
     Route: 048
     Dates: start: 20210924
  5. TACROLIMUS [Interacting]
     Active Substance: TACROLIMUS
     Dosage: 4 MG, ONCE DAILY, BEFORE BREAKFAST
     Route: 048
     Dates: start: 20210925
  6. VEKLURY [Interacting]
     Active Substance: REMDESIVIR
     Indication: COVID-19
     Dosage: 200 MG/DAY, UNKNOWN FREQ.
     Route: 041
  7. VEKLURY [Interacting]
     Active Substance: REMDESIVIR
     Dosage: 100 MG/DAY, UNKNOWN FREQ.
     Route: 041
  8. MYCOPHENOLATE MOFETIL [Concomitant]
     Active Substance: MYCOPHENOLATE MOFETIL
     Indication: Product used for unknown indication
     Dosage: 500 MG, EVERY 12 HOURS, AFTER BREAKFAST AND DINNER
     Route: 048
  9. MYCOPHENOLATE MOFETIL [Concomitant]
     Active Substance: MYCOPHENOLATE MOFETIL
     Route: 048
  10. EVEROLIMUS [Concomitant]
     Active Substance: EVEROLIMUS
     Indication: Product used for unknown indication
     Dosage: 0.375 MG, EVERY 12 HOURS, AFTER BREAKFAST AND DINNER
     Route: 065
  11. EVEROLIMUS [Concomitant]
     Active Substance: EVEROLIMUS
     Dosage: 0.75 MG, EVERY 12 HOURS, AFTER BREAKFAST AND DINNER
     Route: 065
  12. PREDNISOLONE [Concomitant]
     Active Substance: PREDNISOLONE
     Indication: Product used for unknown indication
     Dosage: 5 MG, ONCE DAILY, AFTER BREAKFAST
     Route: 048
  13. FAMOTIDINE [Concomitant]
     Active Substance: FAMOTIDINE
     Indication: Product used for unknown indication
     Dosage: 10 MG, ONCE DAILY, AFTER DINNER
     Route: 048
  14. SULFAMETHOXAZOLE AND TRIMETHOPRIM [Concomitant]
     Active Substance: SULFAMETHOXAZOLE\TRIMETHOPRIM
     Indication: Product used for unknown indication
     Dosage: 1 DF, TWICE WEEKLY, AFTER BREAKFAST
     Route: 048
  15. FLUVASTATIN [Concomitant]
     Active Substance: FLUVASTATIN SODIUM
     Indication: Product used for unknown indication
     Dosage: 30 MG, ONCE DAILY, AFTER DINNER
     Route: 048
  16. FLUVASTATIN [Concomitant]
     Active Substance: FLUVASTATIN SODIUM
     Dosage: 20 MG, ONCE DAILY, AFTER DINNER
     Route: 048
  17. FLUVASTATIN [Concomitant]
     Active Substance: FLUVASTATIN SODIUM
     Dosage: 30 MG, ONCE DAILY, AFTER DINNER
     Route: 048
  18. CARBOCYSTEINE [Concomitant]
     Active Substance: CARBOCYSTEINE
     Indication: Product used for unknown indication
     Dosage: 500 MG/DAY, EVERY 8 HOURS, AFTER EACH MEAL
     Route: 065
  19. CARBOCYSTEINE [Concomitant]
     Active Substance: CARBOCYSTEINE
     Dosage: 500 MG, EVERY 8 HOURS, AFTER EACH MEAL
     Route: 065
  20. DEXAMETHASONE [Concomitant]
     Active Substance: DEXAMETHASONE
     Indication: Prophylaxis
     Dosage: 6.6 MG/DAY, UNKNOWN FREQ.
     Route: 065
  21. DEXAMETHASONE [Concomitant]
     Active Substance: DEXAMETHASONE
     Indication: Prophylaxis
  22. CEFEPIME HYDROCHLORIDE [Concomitant]
     Active Substance: CEFEPIME HYDROCHLORIDE
     Indication: Pneumonia bacterial
     Dosage: 1 G/DAY, UNKNOWN FREQ.
     Route: 065
  23. CEFEPIME HYDROCHLORIDE [Concomitant]
     Active Substance: CEFEPIME HYDROCHLORIDE
     Dosage: 2 G/DAY, UNKNOWN FREQ.
     Route: 065

REACTIONS (4)
  - COVID-19 [Unknown]
  - Drug level increased [Recovering/Resolving]
  - Drug level increased [Recovering/Resolving]
  - Drug interaction [Recovering/Resolving]

NARRATIVE: CASE EVENT DATE: 20210917
